FAERS Safety Report 17227298 (Version 1)
Quarter: 2020Q1

REPORT INFORMATION
  Report Type: Spontaneous
  Country: CN (occurrence: CN)
  Receive Date: 20200103
  Receipt Date: 20200103
  Transmission Date: 20200409
  Serious: Yes (Other)
  Sender: FDA-Public Use
  Company Number: CN-ROCHE-2509188

PATIENT
  Age: 75 Year
  Sex: Male

DRUGS (6)
  1. PACLITAXEL ALBUMIN [Concomitant]
     Active Substance: PACLITAXEL
     Indication: METASTASES TO LIVER
     Dosage: 200 MG ON DAY 1 AND 100 MG ON DAY 8
     Route: 065
     Dates: start: 20190803
  2. XELODA [Suspect]
     Active Substance: CAPECITABINE
     Indication: GASTRIC CANCER
     Dosage: FROM DAY 1 TO DAY 14
     Route: 048
     Dates: start: 20190311
  3. HERCEPTIN [Suspect]
     Active Substance: TRASTUZUMAB
     Indication: GASTRIC CANCER
     Dosage: INITIAL 8MG/KG FOLLOW BY 6 MG/KG
     Route: 065
     Dates: start: 20190311
  4. PACLITAXEL ALBUMIN [Concomitant]
     Active Substance: PACLITAXEL
     Indication: GASTRIC CANCER
     Dosage: ON DAY 1 AND DAY 8
     Route: 065
     Dates: start: 20190311
  5. XELODA [Suspect]
     Active Substance: CAPECITABINE
     Indication: METASTASES TO LIVER
     Dosage: FROM DAY 1 TO DAY 14
     Route: 048
     Dates: start: 20190803
  6. HERCEPTIN [Suspect]
     Active Substance: TRASTUZUMAB
     Indication: METASTASES TO LIVER
     Route: 065
     Dates: start: 20190803

REACTIONS (6)
  - Neutrophil count decreased [Unknown]
  - Pelvic fluid collection [Unknown]
  - Cholecystitis chronic [Unknown]
  - Tumour necrosis [Unknown]
  - Haemoglobin decreased [Unknown]
  - Effusion [Unknown]
